FAERS Safety Report 25583833 (Version 1)
Quarter: 2025Q3

REPORT INFORMATION
  Report Type: Spontaneous
  Country: EU (occurrence: EU)
  Receive Date: 20250721
  Receipt Date: 20250721
  Transmission Date: 20251020
  Serious: Yes (Hospitalization)
  Sender: BOEHRINGER INGELHEIM
  Company Number: None

PATIENT
  Age: 89 Year
  Sex: Female
  Weight: 63 kg

DRUGS (8)
  1. IPRATROPIUM BROMIDE [Suspect]
     Active Substance: IPRATROPIUM BROMIDE
     Indication: Product used for unknown indication
     Dates: start: 20250705, end: 20250707
  2. CEFTRIAXONE SODIUM [Suspect]
     Active Substance: CEFTRIAXONE SODIUM
     Indication: Bacteraemia
     Dates: start: 20250628
  3. CEFTRIAXONE SODIUM [Suspect]
     Active Substance: CEFTRIAXONE SODIUM
     Dates: start: 20250708
  4. ALBUTEROL [Suspect]
     Active Substance: ALBUTEROL
     Indication: Product used for unknown indication
     Dates: start: 20250705, end: 20250707
  5. GABAPENTIN [Suspect]
     Active Substance: GABAPENTIN
     Indication: Pain
     Dates: end: 20250701
  6. VERSATIS 5 %,  medicated plaster [Concomitant]
     Indication: Pain
     Dates: start: 202505
  7. LOVENOX [Concomitant]
     Active Substance: ENOXAPARIN SODIUM
  8. LACTULOSE [Concomitant]
     Active Substance: LACTULOSE

REACTIONS (3)
  - Confusional state [Recovered/Resolved]
  - Agitation [Recovered/Resolved]
  - Fall [Unknown]

NARRATIVE: CASE EVENT DATE: 20250706
